FAERS Safety Report 7936149-6 (Version None)
Quarter: 2011Q4

REPORT INFORMATION
  Report Type: 
  Country: None (occurrence: None)
  Receive Date: 20111123
  Receipt Date: 20111115
  Transmission Date: 20120403
  Serious: Yes (Death, Congenital Anomaly)
  Sender: FDA-Public Use
  Company Number: FR-BRISTOL-MYERS SQUIBB COMPANY-15921299

PATIENT
  Weight: 1 kg

DRUGS (6)
  1. COMBIVIR [Suspect]
     Route: 064
     Dates: start: 20050908
  2. EMTRIVA [Concomitant]
     Route: 064
     Dates: start: 20050523
  3. SUSTIVA [Suspect]
     Route: 064
     Dates: start: 20050815, end: 20050908
  4. VIDEX [Suspect]
     Route: 064
     Dates: start: 20050815, end: 20050908
  5. VIRAMUNE [Concomitant]
     Route: 064
     Dates: start: 20050704
  6. KALETRA [Suspect]
     Route: 064
     Dates: start: 20050908

REACTIONS (2)
  - FOETAL MALFORMATION [None]
  - SPINA BIFIDA [None]
